FAERS Safety Report 14905264 (Version 1)
Quarter: 2018Q2

REPORT INFORMATION
  Report Type: Spontaneous
  Country: FR (occurrence: FR)
  Receive Date: 20180517
  Receipt Date: 20180517
  Transmission Date: 20180711
  Serious: Yes (Other)
  Sender: FDA-Public Use
  Company Number: FR-MERCK KGAA-2047956

PATIENT
  Age: 43 Year
  Sex: Female

DRUGS (1)
  1. NOVOTHYROX [Suspect]
     Active Substance: LEVOTHYROXINE SODIUM
     Indication: PRODUCT USED FOR UNKNOWN INDICATION

REACTIONS (27)
  - Apathy [Recovering/Resolving]
  - Disturbance in attention [Recovering/Resolving]
  - Decreased interest [Recovering/Resolving]
  - Presyncope [Recovering/Resolving]
  - Amnesia [Recovering/Resolving]
  - Cardiovascular disorder [Recovering/Resolving]
  - Dizziness [Recovering/Resolving]
  - Decreased activity [Recovering/Resolving]
  - Loss of consciousness [Recovering/Resolving]
  - Angina pectoris [Recovering/Resolving]
  - Arthralgia [Recovering/Resolving]
  - Fatigue [Recovering/Resolving]
  - Anger [Recovering/Resolving]
  - Asthenia [Recovering/Resolving]
  - Peripheral swelling [Recovering/Resolving]
  - Loss of libido [Recovering/Resolving]
  - Varicose vein [Recovering/Resolving]
  - Myalgia [Recovering/Resolving]
  - Weight fluctuation [Recovering/Resolving]
  - Depression [Recovering/Resolving]
  - Psychiatric symptom [Recovering/Resolving]
  - Muscle twitching [Recovering/Resolving]
  - Nausea [Recovering/Resolving]
  - Insomnia [Recovering/Resolving]
  - Pain in extremity [Recovering/Resolving]
  - Blood pressure decreased [Recovering/Resolving]
  - Alopecia [Recovering/Resolving]

NARRATIVE: CASE EVENT DATE: 201704
